FAERS Safety Report 9291040 (Version 6)
Quarter: 2013Q4

REPORT INFORMATION
  Report Type: Spontaneous
  Country: US (occurrence: US)
  Receive Date: 20130515
  Receipt Date: 20131127
  Transmission Date: 20140711
  Serious: Yes (Hospitalization, Disabling, Other)
  Sender: FDA-Public Use
  Company Number: US-009507513-1203USA02939

PATIENT
  Sex: Female
  Weight: 72.79 kg

DRUGS (14)
  1. FOSAMAX [Suspect]
     Indication: OSTEOPOROSIS
     Dosage: 10 MG, UNK
     Route: 048
     Dates: start: 200008, end: 20010215
  2. FOSAMAX [Suspect]
     Indication: OSTEOPENIA
     Dosage: 70 MG, UNK
     Route: 048
     Dates: start: 20010215, end: 200612
  3. VITAMINS (UNSPECIFIED) [Concomitant]
     Dosage: 1 UNK, QD
     Dates: start: 1980
  4. OMEPRAZOLE [Concomitant]
     Dosage: 20 MG, QD
     Dates: start: 1995
  5. CORTICOSTEROIDS (UNSPECIFIED) [Concomitant]
     Dosage: UNK, PRN
     Dates: start: 1995
  6. HORMONES (UNSPECIFIED) [Concomitant]
     Dosage: UNK
     Dates: start: 1973
  7. MAXIDE [Concomitant]
     Indication: FLUID RETENTION
     Dosage: UNK, QD
     Dates: start: 1980
  8. FORTEO [Suspect]
     Indication: OSTEOPOROSIS
     Dosage: 20 MICROGRAM, QD
     Dates: start: 20070615
  9. FORTEO [Suspect]
     Dosage: 40 MICROGRAM, UNK
  10. LOESTRIN 1/20 [Concomitant]
     Indication: OVARIAN CYST
     Dosage: UNK
     Dates: start: 2002
  11. ESTROGENS (UNSPECIFIED) [Concomitant]
     Indication: OSTEOPENIA
  12. PREMPRO [Concomitant]
     Indication: MENOPAUSAL SYMPTOMS
     Dosage: UNK
     Dates: start: 200502
  13. ORTHO EVRA [Concomitant]
     Indication: MENOPAUSAL SYMPTOMS
  14. ASPIRIN [Concomitant]
     Indication: ARTHRITIS
     Dosage: UNK

REACTIONS (118)
  - Open reduction of fracture [Unknown]
  - Intramedullary rod insertion [Unknown]
  - Knee arthroplasty [Unknown]
  - Pain [Not Recovered/Not Resolved]
  - Peripheral nerve transposition [Unknown]
  - Rotator cuff repair [Unknown]
  - Shoulder arthroplasty [Unknown]
  - Femur fracture [Recovered/Resolved]
  - Low turnover osteopathy [Unknown]
  - Thyroid operation [Unknown]
  - Tibia fracture [Unknown]
  - Peroneal nerve palsy [Unknown]
  - Femur fracture [Recovering/Resolving]
  - Femur fracture [Recovering/Resolving]
  - Fall [Unknown]
  - Renal injury [Unknown]
  - Laceration [Unknown]
  - Foot fracture [Unknown]
  - Impaired healing [Unknown]
  - Low turnover osteopathy [Unknown]
  - Endodontic procedure [Unknown]
  - Endodontic procedure [Unknown]
  - Depression [Unknown]
  - Anxiety [Unknown]
  - Hypothyroidism [Not Recovered/Not Resolved]
  - Depression [Unknown]
  - Rheumatoid arthritis [Not Recovered/Not Resolved]
  - Vitamin D deficiency [Unknown]
  - Calcium deficiency [Unknown]
  - Infection [Unknown]
  - Cough [Unknown]
  - Dyspnoea [Unknown]
  - Bursitis [Unknown]
  - Blister [Unknown]
  - Foot fracture [Unknown]
  - Foot fracture [Recovered/Resolved]
  - Impaired healing [Unknown]
  - Impaired healing [Unknown]
  - Foot fracture [Unknown]
  - Osteoarthritis [Not Recovered/Not Resolved]
  - Foot fracture [Recovering/Resolving]
  - Hand fracture [Unknown]
  - Fall [Unknown]
  - Debridement [Unknown]
  - Wound closure [Unknown]
  - Nodule [Unknown]
  - Fall [Unknown]
  - Arthritis [Not Recovered/Not Resolved]
  - Breast swelling [Unknown]
  - Breast tenderness [Unknown]
  - Vaginal haemorrhage [Unknown]
  - Uterine leiomyoma [Unknown]
  - Carpal tunnel syndrome [Unknown]
  - Tenosynovitis stenosans [Unknown]
  - Osteoarthritis [Unknown]
  - Bursitis [Unknown]
  - Tendonitis [Unknown]
  - Hypertension [Unknown]
  - Cervical dysplasia [Unknown]
  - Migraine [Not Recovered/Not Resolved]
  - Fibrocystic breast disease [Not Recovered/Not Resolved]
  - Urinary tract infection [Not Recovered/Not Resolved]
  - Breast calcifications [Unknown]
  - Limb operation [Unknown]
  - Arthroscopy [Unknown]
  - Nerve compression [Unknown]
  - Osteoarthritis [Unknown]
  - Bacterial pyelonephritis [Unknown]
  - Pyelonephritis [Not Recovered/Not Resolved]
  - Night sweats [Unknown]
  - Hot flush [Not Recovered/Not Resolved]
  - Uterine polyp [Unknown]
  - Drug abuse [Recovering/Resolving]
  - Joint stiffness [Unknown]
  - Bunion [Unknown]
  - Erythema infectiosum [Unknown]
  - Synovitis [Unknown]
  - Cushingoid [Unknown]
  - Exophthalmos [Unknown]
  - Rotator cuff syndrome [Unknown]
  - Uterine polyp [Unknown]
  - Postmenopausal haemorrhage [Unknown]
  - Carpal tunnel decompression [Unknown]
  - Meniscus removal [Unknown]
  - N-telopeptide urine decreased [Unknown]
  - Foot fracture [Unknown]
  - Foot fracture [Unknown]
  - Foot fracture [Unknown]
  - Foot fracture [Unknown]
  - Urine calcium decreased [Unknown]
  - Head injury [Unknown]
  - Osteocalcin decreased [Unknown]
  - Joint injury [Unknown]
  - Joint injury [Unknown]
  - Limb injury [Unknown]
  - Upper limb fracture [Unknown]
  - Road traffic accident [Unknown]
  - Liver function test abnormal [Unknown]
  - Ecchymosis [Unknown]
  - Arthralgia [Unknown]
  - Off label use [Unknown]
  - Pain in extremity [Unknown]
  - Pain in extremity [Unknown]
  - Pain in extremity [Unknown]
  - Gastrooesophageal reflux disease [Not Recovered/Not Resolved]
  - Headache [Unknown]
  - Nausea [Unknown]
  - Diarrhoea [Unknown]
  - Drug ineffective [Unknown]
  - Pain in jaw [Unknown]
  - Joint effusion [Unknown]
  - Endometriosis [Unknown]
  - Peripheral nerve lesion [Unknown]
  - Ocular hypertension [Unknown]
  - Adjustment disorder with depressed mood [Unknown]
  - Diverticulum [Unknown]
  - Foot fracture [Unknown]
  - Fracture nonunion [Unknown]
